FAERS Safety Report 10186756 (Version 1)
Quarter: 2014Q2

REPORT INFORMATION
  Report Type: Report from Study
  Country: AR (occurrence: AR)
  Receive Date: 20140521
  Receipt Date: 20140521
  Transmission Date: 20141212
  Serious: Yes (Death, Other)
  Sender: FDA-Public Use
  Company Number: PHHY2014AR060378

PATIENT
  Age: 79 Year
  Sex: Female

DRUGS (1)
  1. DIOVAN [Suspect]
     Dosage: 80 MG, UNK
     Route: 048

REACTIONS (3)
  - Cardio-respiratory arrest [Fatal]
  - Lung neoplasm malignant [Unknown]
  - Aortic calcification [Unknown]
